FAERS Safety Report 18925893 (Version 1)
Quarter: 2021Q1

REPORT INFORMATION
  Report Type: Report from Study
  Country: None (occurrence: US)
  Receive Date: 20210222
  Receipt Date: 20210222
  Transmission Date: 20210420
  Serious: Yes (Hospitalization)
  Sender: FDA-Public Use
  Company Number: US-ABBVIE-20K-163-3314704-00

PATIENT
  Age: 27 Year
  Sex: Male
  Weight: 95.34 kg

DRUGS (1)
  1. HUMIRA [Suspect]
     Active Substance: ADALIMUMAB
     Indication: HIDRADENITIS
     Route: 058
     Dates: start: 2018, end: 2020

REACTIONS (6)
  - Drug ineffective [Recovered/Resolved]
  - Localised infection [Recovered/Resolved]
  - Hidradenitis [Recovered/Resolved]
  - Abdominal pain upper [Unknown]
  - Pain [Recovered/Resolved]
  - Back pain [Unknown]

NARRATIVE: CASE EVENT DATE: 20200316
